FAERS Safety Report 18299527 (Version 2)
Quarter: 2020Q3

REPORT INFORMATION
  Report Type: Spontaneous
  Country: AU (occurrence: AU)
  Receive Date: 20200922
  Receipt Date: 20200928
  Transmission Date: 20201103
  Serious: Yes (Other)
  Sender: FDA-Public Use
  Company Number: AU-TAKEDA-2020TUS039080

PATIENT
  Age: 54 Year
  Sex: Male

DRUGS (1)
  1. BRIGATINIB [Suspect]
     Active Substance: BRIGATINIB
     Indication: NON-SMALL CELL LUNG CANCER
     Dosage: UNK
     Route: 065

REACTIONS (8)
  - Gait disturbance [Unknown]
  - Amnesia [Unknown]
  - Fatigue [Unknown]
  - Cognitive disorder [Unknown]
  - Seizure [Unknown]
  - Metastases to central nervous system [Unknown]
  - Cerebral disorder [Unknown]
  - Disorientation [Unknown]

NARRATIVE: CASE EVENT DATE: 2020
